FAERS Safety Report 7281259-2 (Version None)
Quarter: 2011Q1

REPORT INFORMATION
  Report Type: 
  Country: None (occurrence: None)
  Receive Date: 20110208
  Receipt Date: 20110204
  Transmission Date: 20110831
  Serious: Yes (Death, Other)
  Sender: FDA-Public Use
  Company Number: CHPA2011US02331

PATIENT
  Age: 98 Year
  Sex: Female
  Weight: 45.351 kg

DRUGS (2)
  1. MAALOX ANTACID/ANTIGAS MAX QDTABS ASST [Suspect]
     Dosage: 1 DF, QD
     Route: 048
     Dates: start: 20020101, end: 20050101
  2. MAALOX ANTACID/ANTIGAS MAX QDTABS ASST [Suspect]
     Indication: FAECES HARD
     Dosage: 1 DF, QD
     Route: 048
     Dates: start: 20020101, end: 20050101

REACTIONS (4)
  - OFF LABEL USE [None]
  - INTENTIONAL DRUG MISUSE [None]
  - DEATH [None]
  - WRONG TECHNIQUE IN DRUG USAGE PROCESS [None]
